FAERS Safety Report 6802624-0 (Version None)
Quarter: 2010Q2

REPORT INFORMATION
  Report Type: 
  Country: None (occurrence: None)
  Receive Date: 20100628
  Receipt Date: 20100614
  Transmission Date: 20101027
  Serious: No
  Sender: FDA-Public Use
  Company Number: US-B.I. PHARMACEUTICALS,INC./RIDGEFIELD-2010-BP-06715BP

PATIENT
  Sex: Female

DRUGS (1)
  1. TWYNSTA [Suspect]
     Indication: HYPERTENSION
     Dates: start: 20100414, end: 20100424

REACTIONS (17)
  - ASTHENIA [None]
  - BLOOD PRESSURE ABNORMAL [None]
  - BLOOD PRESSURE DECREASED [None]
  - CONTUSION [None]
  - DEPRESSED LEVEL OF CONSCIOUSNESS [None]
  - DYSPNOEA [None]
  - FACE OEDEMA [None]
  - FATIGUE [None]
  - GAIT DISTURBANCE [None]
  - HEART RATE INCREASED [None]
  - HYPOTENSION [None]
  - INSOMNIA [None]
  - NIGHTMARE [None]
  - OEDEMA PERIPHERAL [None]
  - STUPOR [None]
  - URINE ANALYSIS ABNORMAL [None]
  - URINE OUTPUT DECREASED [None]
